FAERS Safety Report 4283798-5 (Version None)
Quarter: 2004Q1

REPORT INFORMATION
  Report Type: 
  Country: None (occurrence: None)
  Receive Date: 20040115
  Receipt Date: 20030429
  Transmission Date: 20041129
  Serious: Yes (Other)
  Sender: FDA-Public Use
  Company Number: NSADSS2003020576

PATIENT
  Age: 75 Year
  Sex: Female
  Weight: 62.1428 kg

DRUGS (5)
  1. DOXIL [Suspect]
     Indication: LUNG NEOPLASM MALIGNANT
     Dosage: 18 MG , INTRAVENOUS DRIP
     Route: 041
     Dates: start: 20030331, end: 20030331
  2. CARBOPLATIN [Concomitant]
  3. ETOPOSIDE [Concomitant]
  4. ATACAND [Concomitant]
  5. ZIAC (BISELECT) [Concomitant]

REACTIONS (4)
  - CONSTIPATION [None]
  - DYSPHAGIA [None]
  - HYPERSENSITIVITY [None]
  - PLEURAL EFFUSION [None]
